FAERS Safety Report 5689067-0 (Version None)
Quarter: 2008Q1

REPORT INFORMATION
  Report Type: 
  Country: None (occurrence: None)
  Receive Date: 20080331
  Receipt Date: 20080328
  Transmission Date: 20080703
  Serious: Yes (Hospitalization)
  Sender: FDA-Public Use
  Company Number: B0514261A

PATIENT
  Age: 87 Year
  Sex: Female

DRUGS (10)
  1. ARIXTRA [Suspect]
     Indication: THROMBOSIS PROPHYLAXIS
     Dosage: 2.5MG PER DAY
     Route: 058
     Dates: start: 20080307, end: 20080314
  2. LORCAM [Suspect]
     Route: 048
  3. CEFAMEZIN [Concomitant]
  4. GASMOTIN [Concomitant]
     Route: 048
  5. SUNRYTHM [Concomitant]
     Route: 048
  6. CYTOTEC [Concomitant]
     Route: 048
  7. GLYSENNID [Concomitant]
     Route: 048
  8. ARICEPT [Concomitant]
     Route: 048
  9. NITRODERM [Concomitant]
     Route: 062
  10. OMEPRAL [Concomitant]
     Route: 048

REACTIONS (3)
  - DIARRHOEA [None]
  - FAECES DISCOLOURED [None]
  - GASTRIC ULCER [None]
